FAERS Safety Report 8282292-4 (Version None)
Quarter: 2012Q1

REPORT INFORMATION
  Report Type: 
  Country: None (occurrence: None)
  Receive Date: 20120329
  Receipt Date: 20120320
  Transmission Date: 20120608
  Serious: Yes (Other)
  Sender: FDA-Public Use
  Company Number: AETUR200900316

PATIENT
  Age: 3 Year
  Sex: Male

DRUGS (1)
  1. IMMUNE GLOBULIN INTRAVENOUS (HUMAN) [Suspect]
     Indication: GUILLAIN-BARRE SYNDROME
     Dosage: QD;IV
     Route: 042

REACTIONS (3)
  - BRAIN OEDEMA [None]
  - ENCEPHALOPATHY [None]
  - POSTERIOR REVERSIBLE ENCEPHALOPATHY SYNDROME [None]
